FAERS Safety Report 8377103-2 (Version None)
Quarter: 2012Q2

REPORT INFORMATION
  Report Type: 
  Country: None (occurrence: None)
  Receive Date: 20120522
  Receipt Date: 20120507
  Transmission Date: 20120825
  Serious: Yes (Other)
  Sender: FDA-Public Use
  Company Number: CA-WATSON-2012-07956

PATIENT
  Age: 10 Year
  Sex: Male
  Weight: 44 kg

DRUGS (4)
  1. MORPHINE [Suspect]
     Indication: PAIN MANAGEMENT
     Dosage: UNK UNK, UNK
     Route: 065
  2. ZIPRASIDONE HCL [Suspect]
     Indication: PAIN MANAGEMENT
     Dosage: UNK UNK, UNK
     Route: 065
  3. FENTANYL-100 [Suspect]
     Indication: PAIN MANAGEMENT
     Dosage: UNK UNK, UNK
     Route: 065
  4. CODEINE SULFATE [Suspect]
     Indication: PAIN MANAGEMENT
     Dosage: UNK UNK, UNK
     Route: 065

REACTIONS (2)
  - SEROTONIN SYNDROME [None]
  - DRUG INTERACTION [None]
